FAERS Safety Report 5196454-6 (Version None)
Quarter: 2006Q4

REPORT INFORMATION
  Report Type: 
  Country: None (occurrence: None)
  Receive Date: 20061227
  Receipt Date: 20061211
  Transmission Date: 20070319
  Serious: Yes (Other)
  Sender: FDA-Public Use
  Company Number: 150871ISR

PATIENT
  Age: 72 Year
  Sex: Female

DRUGS (1)
  1. NITROFURANTOIN [Suspect]
     Indication: URINARY TRACT INFECTION
     Dosage: 100 MG (100 MG, 1 IN 1 D)
     Route: 048
     Dates: start: 20060704, end: 20061003

REACTIONS (2)
  - VULVAL LEUKOPLAKIA [None]
  - VULVITIS [None]
